FAERS Safety Report 10339787 (Version 2)
Quarter: 2014Q3

REPORT INFORMATION
  Report Type: Spontaneous
  Country: US (occurrence: US)
  Receive Date: 20140724
  Receipt Date: 20140829
  Transmission Date: 20150326
  Serious: Yes (Other)
  Sender: FDA-Public Use
  Company Number: US-SA-2014SA097001

PATIENT
  Age: 72 Year
  Sex: Female

DRUGS (4)
  1. LANTUS SOLOSTAR [Suspect]
     Active Substance: INSULIN GLARGINE
     Indication: TYPE 2 DIABETES MELLITUS
     Route: 065
     Dates: start: 201407
  2. LANTUS SOLOSTAR [Suspect]
     Active Substance: INSULIN GLARGINE
     Indication: TYPE 2 DIABETES MELLITUS
     Route: 065
     Dates: start: 201407
  3. SOLOSTAR [Concomitant]
     Active Substance: DEVICE
     Dates: start: 201407
  4. LANTUS SOLOSTAR [Suspect]
     Active Substance: INSULIN GLARGINE
     Indication: TYPE 2 DIABETES MELLITUS
     Route: 065
     Dates: start: 201407

REACTIONS (6)
  - Retinal detachment [Unknown]
  - Vision blurred [Unknown]
  - Pruritus [Recovered/Resolved]
  - Cerebrovascular accident [Unknown]
  - Head injury [Unknown]
  - Fall [Unknown]
